FAERS Safety Report 11465500 (Version 1)
Quarter: 2015Q3

REPORT INFORMATION
  Report Type: Spontaneous
  Country: CA (occurrence: CA)
  Receive Date: 20150907
  Receipt Date: 20150907
  Transmission Date: 20151125
  Serious: Yes (Hospitalization)
  Sender: FDA-Public Use
  Company Number: CA-009507513-1508CAN000865

PATIENT
  Sex: Female

DRUGS (3)
  1. TEMODAL [Suspect]
     Active Substance: TEMOZOLOMIDE
     Indication: NEUROENDOCRINE TUMOUR
     Dosage: 340 MG DAILY, 5 DAYS PER FIRST CYCLE
     Route: 048
     Dates: start: 20150615, end: 2015
  2. XELODA [Concomitant]
     Active Substance: CAPECITABINE
     Dosage: UNK
     Route: 065
  3. TEMODAL [Suspect]
     Active Substance: TEMOZOLOMIDE
     Dosage: 370 MG, CYCLICAL, 10-14 DAYS OF CYCLE
     Route: 048
     Dates: start: 20150717, end: 2015

REACTIONS (9)
  - Palliative care [Unknown]
  - Platelet count decreased [Recovering/Resolving]
  - Pain [Unknown]
  - Blood test abnormal [Unknown]
  - Malaise [Unknown]
  - Feeding disorder [Unknown]
  - White blood cell count decreased [Not Recovered/Not Resolved]
  - Fatigue [Unknown]
  - Somnolence [Unknown]

NARRATIVE: CASE EVENT DATE: 2015
